FAERS Safety Report 21123105 (Version 1)
Quarter: 2022Q3

REPORT INFORMATION
  Report Type: Spontaneous
  Country: US (occurrence: US)
  Receive Date: 20220724
  Receipt Date: 20220724
  Transmission Date: 20221027
  Serious: No
  Sender: FDA-Public Use
  Company Number: US-BRISTOL-MYERS SQUIBB COMPANY-2022-063999

PATIENT
  Age: 76 Year
  Sex: Male

DRUGS (7)
  1. ELIQUIS [Suspect]
     Active Substance: APIXABAN
     Indication: Product used for unknown indication
     Dosage: ELIQUIS 5 MG
     Route: 065
  2. COUMADIN [Suspect]
     Active Substance: WARFARIN SODIUM
     Indication: Cerebrovascular accident
     Route: 065
     Dates: start: 2013
  3. GLIPIZIDE [Concomitant]
     Active Substance: GLIPIZIDE
  4. CETIRIZINE GL [Concomitant]
  5. DIAFIX [Concomitant]
  6. ATORVASTATIN [Concomitant]
     Active Substance: ATORVASTATIN
  7. LEVONEX [Concomitant]

REACTIONS (1)
  - Adverse event [Unknown]
